FAERS Safety Report 7594814-7 (Version None)
Quarter: 2011Q3

REPORT INFORMATION
  Report Type: 
  Country: None (occurrence: None)
  Receive Date: 20110707
  Receipt Date: 20110627
  Transmission Date: 20111222
  Serious: Yes (Other)
  Sender: FDA-Public Use
  Company Number: US-ASTRAZENECA-2011SE38469

PATIENT
  Sex: Female

DRUGS (2)
  1. VIDAZA [Concomitant]
  2. FASLODEX [Suspect]
     Indication: BREAST CANCER
     Route: 030

REACTIONS (2)
  - PLATELET COUNT DECREASED [None]
  - ACUTE MYELOID LEUKAEMIA [None]
